FAERS Safety Report 4939359-5 (Version None)
Quarter: 2006Q1

REPORT INFORMATION
  Report Type: 
  Country: None (occurrence: None)
  Receive Date: 20060306
  Receipt Date: 20060217
  Transmission Date: 20060701
  Serious: Yes (Hospitalization)
  Sender: FDA-Public Use
  Company Number: IT200602004218

PATIENT
  Age: 58 Year
  Sex: Male

DRUGS (7)
  1. ZYPREXA [Suspect]
     Indication: SCHIZOPHRENIA
     Dosage: 2.5 MG, DAILY (1/D), ORAL
     Route: 048
     Dates: start: 20001006, end: 20051101
  2. ACETYLSALICYLIC ACID SRT [Concomitant]
  3. NAPRILENE (ENALAPRIL MALEATE) [Concomitant]
  4. DIURESIX (TORASEMIDE SODIUM) [Concomitant]
  5. ESKIM (OMEGA-3 TRIGLYCERIDES) [Concomitant]
  6. TOTALIP (ATORVASTATIN CALCIUM) [Concomitant]
  7. CARVEDILOL [Concomitant]

REACTIONS (4)
  - HIGH DENSITY LIPOPROTEIN DECREASED [None]
  - HYPERCHOLESTEROLAEMIA [None]
  - HYPERTRIGLYCERIDAEMIA [None]
  - LOW DENSITY LIPOPROTEIN INCREASED [None]
